FAERS Safety Report 6859233-7 (Version None)
Quarter: 2010Q3

REPORT INFORMATION
  Report Type: 
  Country: None (occurrence: None)
  Receive Date: 20100719
  Receipt Date: 20080226
  Transmission Date: 20110219
  Serious: Yes (Other)
  Sender: FDA-Public Use
  Company Number: US-PFIZER INC-2008018819

PATIENT
  Age: 67 Year
  Sex: Female
  Weight: 63.636 kg

DRUGS (1)
  1. CHANTIX [Suspect]
     Dates: start: 20080201

REACTIONS (3)
  - EMOTIONAL DISORDER [None]
  - SOMNOLENCE [None]
  - SUICIDE ATTEMPT [None]
